FAERS Safety Report 8187442-6 (Version None)
Quarter: 2012Q1

REPORT INFORMATION
  Report Type: 
  Country: None (occurrence: None)
  Receive Date: 20120306
  Receipt Date: 20120227
  Transmission Date: 20120608
  Serious: Yes (Other)
  Sender: FDA-Public Use
  Company Number: US-BAYER-2011-124561

PATIENT
  Age: 16 Year
  Sex: Female
  Weight: 50.794 kg

DRUGS (9)
  1. PREDNISONE TAB [Concomitant]
     Dosage: 20 MG, UNK
     Dates: start: 20090906
  2. BENZONATATE [Concomitant]
     Dosage: 100 MG, UNK
     Dates: start: 20090918, end: 20090918
  3. FERROUS SULFATE TAB [Concomitant]
     Dosage: 325 MG, UNK
     Dates: start: 20090906
  4. AZITHROMYCIN [Concomitant]
     Dosage: 250 MG, UNK
     Dates: start: 20090918
  5. ASPIRIN [Concomitant]
     Dosage: TID
     Dates: start: 20090901
  6. ACETAMINOPHEN AND HYDROCODONE BITARTRATE [Concomitant]
     Dosage: 5 MG, UNK
     Dates: start: 20090527
  7. YAZ [Suspect]
     Indication: CONTRACEPTION
     Dosage: UNK
     Dates: start: 20080101, end: 20091001
  8. ALBUTEROL [Concomitant]
     Dosage: UNK
     Route: 055
     Dates: start: 20090905
  9. NAPROXEN [Concomitant]
     Dosage: 500 MG, UNK
     Dates: start: 20090906

REACTIONS (3)
  - INJURY [None]
  - PULMONARY EMBOLISM [None]
  - THROMBOSIS [None]
